FAERS Safety Report 5063645-4 (Version None)
Quarter: 2006Q3

REPORT INFORMATION
  Report Type: 
  Country: None (occurrence: None)
  Receive Date: 20060724
  Receipt Date: 20060710
  Transmission Date: 20061208
  Serious: Yes (Death, Hospitalization)
  Sender: FDA-Public Use
  Company Number: 2006-01298

PATIENT
  Age: 60 Year
  Sex: Female
  Weight: 48 kg

DRUGS (3)
  1. VELCADE [Suspect]
     Indication: MULTIPLE MYELOMA
     Dosage: 1.80 MG, INTRAVENOUS
     Route: 042
     Dates: start: 20060222, end: 20060512
  2. DEXAMETHASONE TAB [Suspect]
     Indication: MULTIPLE MYELOMA
     Dosage: 40.00 MG,
  3. ERYTHROPOIETIN               (ERYTHROPOIETIN) [Concomitant]

REACTIONS (31)
  - ACUTE RESPIRATORY DISTRESS SYNDROME [None]
  - ANAEMIA [None]
  - ANURIA [None]
  - BLOOD PRESSURE DECREASED [None]
  - CARDIAC AMYLOIDOSIS [None]
  - CARDIO-RESPIRATORY DISTRESS [None]
  - CARDIOGENIC SHOCK [None]
  - CARPAL TUNNEL SYNDROME [None]
  - CATHETER SITE HAEMORRHAGE [None]
  - CHOLELITHIASIS [None]
  - CLONUS [None]
  - COAGULATION FACTOR VII LEVEL DECREASED [None]
  - COAGULATION FACTOR X LEVEL DECREASED [None]
  - DIALYSIS [None]
  - FIBRIN D DIMER INCREASED [None]
  - GALLBLADDER DISORDER [None]
  - HAEMODYNAMIC INSTABILITY [None]
  - HYPERKALAEMIA [None]
  - HYPOCAPNIA [None]
  - HYPOXIA [None]
  - ILEUS PARALYTIC [None]
  - MULTI-ORGAN FAILURE [None]
  - PNEUMOCOCCAL BACTERAEMIA [None]
  - PROTHROMBIN TIME PROLONGED [None]
  - RALES [None]
  - RENAL IMPAIRMENT [None]
  - SEPTIC SHOCK [None]
  - SPLENOMEGALY [None]
  - TACHYCARDIA [None]
  - TACHYPNOEA [None]
  - TONGUE HAEMORRHAGE [None]
